FAERS Safety Report 19067937 (Version 1)
Quarter: 2021Q1

REPORT INFORMATION
  Report Type: Report from Study
  Country: US (occurrence: US)
  Receive Date: 20210329
  Receipt Date: 20210329
  Transmission Date: 20210420
  Serious: Yes (Death)
  Sender: FDA-Public Use
  Company Number: US-PFIZER INC-2021315197

PATIENT
  Age: 42 Year
  Sex: Male

DRUGS (7)
  1. DIAZEPAM. [Suspect]
     Active Substance: DIAZEPAM
     Dosage: UNK
  2. NORDIAZEPAM [Concomitant]
     Active Substance: NORDAZEPAM
     Dosage: UNK
  3. FLUOXETINE [Suspect]
     Active Substance: FLUOXETINE HYDROCHLORIDE
     Dosage: UNK
  4. DOXEPIN HCL [Suspect]
     Active Substance: DOXEPIN HYDROCHLORIDE
     Dosage: UNK
  5. COCAINE [Suspect]
     Active Substance: COCAINE
     Dosage: UNK
  6. BENZOYLECGONINE [Concomitant]
     Active Substance: BENZOYLECGONINE
     Dosage: UNK
  7. NORDOXEPIN [Concomitant]
     Active Substance: DESMETHYLDOXEPIN
     Dosage: UNK

REACTIONS (2)
  - Completed suicide [Fatal]
  - Toxicity to various agents [Fatal]
